FAERS Safety Report 7983572-X (Version None)
Quarter: 2011Q4

REPORT INFORMATION
  Report Type: 
  Country: None (occurrence: None)
  Receive Date: 20111215
  Receipt Date: 20111207
  Transmission Date: 20120403
  Serious: Yes (Other)
  Sender: FDA-Public Use
  Company Number: PHHY2010TW50953

PATIENT
  Sex: Female

DRUGS (1)
  1. TASIGNA [Suspect]
     Indication: CHRONIC MYELOID LEUKAEMIA
     Dosage: 2 PILLS IN THE MORNING AND EVENING
     Route: 048

REACTIONS (10)
  - VAGINAL HAEMORRHAGE [None]
  - DRY SKIN [None]
  - BLOOD POTASSIUM INCREASED [None]
  - DENTAL CARIES [None]
  - PLATELET COUNT DECREASED [None]
  - DEPRESSION [None]
  - ENDOMETRIAL HYPERPLASIA [None]
  - TOOTHACHE [None]
  - PERIODONTAL DISEASE [None]
  - BLOOD GLUCOSE INCREASED [None]
